FAERS Safety Report 13640353 (Version 1)
Quarter: 2017Q2

REPORT INFORMATION
  Report Type: Report from Study
  Country: None (occurrence: US)
  Receive Date: 20170610
  Receipt Date: 20170610
  Transmission Date: 20170830
  Serious: Yes (Hospitalization, Other)
  Sender: FDA-Public Use
  Company Number: US-ABBVIE-17K-163-2003626-00

PATIENT
  Sex: Female

DRUGS (3)
  1. HUMIRA [Suspect]
     Active Substance: ADALIMUMAB
     Indication: RHEUMATOID ARTHRITIS
     Route: 058
  2. TRAMADOL. [Concomitant]
     Active Substance: TRAMADOL
     Indication: PRODUCT USED FOR UNKNOWN INDICATION
  3. METHOTREXATE. [Concomitant]
     Active Substance: METHOTREXATE
     Indication: PRODUCT USED FOR UNKNOWN INDICATION

REACTIONS (12)
  - Intervertebral disc degeneration [Unknown]
  - Fibromyalgia [Unknown]
  - Sjogren^s syndrome [Unknown]
  - Pleural effusion [Unknown]
  - Neovascularisation [Unknown]
  - Stomatitis [Unknown]
  - Paraesthesia [Unknown]
  - Knee arthroplasty [Unknown]
  - Fatigue [Unknown]
  - Rheumatoid arthritis [Unknown]
  - Postpericardiotomy syndrome [Unknown]
  - Osteoarthritis [Unknown]
